FAERS Safety Report 6266653-0 (Version None)
Quarter: 2009Q3

REPORT INFORMATION
  Report Type: 
  Country: None (occurrence: None)
  Receive Date: 20090710
  Receipt Date: 20090701
  Transmission Date: 20100115
  Serious: Yes (Other)
  Sender: FDA-Public Use
  Company Number: 2009AL001153

PATIENT
  Age: 32 Year
  Sex: Male
  Weight: 130.6359 kg

DRUGS (20)
  1. DIGOXIN [Suspect]
     Dosage: 0.25MG, DAILY, PO
     Route: 048
  2. VALIUM [Concomitant]
  3. ADVAIR HFA [Concomitant]
  4. XYLOPRIL [Concomitant]
  5. TOPROL-XL [Concomitant]
  6. ELAVIL [Concomitant]
  7. PAXIL [Concomitant]
  8. LISINOPRIL [Concomitant]
  9. COREG [Concomitant]
  10. ALLOPURINOL [Concomitant]
  11. ASPIRIN [Concomitant]
  12. .. [Concomitant]
  13. ZOLOFT [Concomitant]
  14. ZONEGRAN [Concomitant]
  15. TYLENOL (CAPLET) [Concomitant]
  16. XANAX [Concomitant]
  17. ALPRAZOLAM [Concomitant]
  18. CITALOPRAM HYDROBROMIDE [Concomitant]
  19. ZONISAMIDE [Concomitant]
  20. CLONAZEPAM [Concomitant]

REACTIONS (18)
  - ANXIETY [None]
  - ASTHENIA [None]
  - ASTHMA [None]
  - CARDIAC DISORDER [None]
  - CARDIAC FAILURE [None]
  - CARPAL TUNNEL SYNDROME [None]
  - CONVULSION [None]
  - FEELING ABNORMAL [None]
  - HYPERHIDROSIS [None]
  - LOWER RESPIRATORY TRACT INFECTION [None]
  - MUSCULAR WEAKNESS [None]
  - NERVE COMPRESSION [None]
  - NERVOUS SYSTEM DISORDER [None]
  - PARAESTHESIA [None]
  - PARTIAL SEIZURES [None]
  - PRESYNCOPE [None]
  - SPEECH DISORDER [None]
  - TRAUMATIC LUNG INJURY [None]
